FAERS Safety Report 19424042 (Version 1)
Quarter: 2021Q2

REPORT INFORMATION
  Report Type: Spontaneous
  Country: US (occurrence: US)
  Receive Date: 20210616
  Receipt Date: 20210616
  Transmission Date: 20210717
  Serious: No
  Sender: FDA-Public Use
  Company Number: US-PFIZER INC-2021556644

PATIENT
  Age: 68 Year
  Sex: Female

DRUGS (2)
  1. NEURONTIN [Suspect]
     Active Substance: GABAPENTIN
     Indication: NEURALGIA
     Dosage: 900 MG, DAILY, 300 MG IN THE MORNING AND 600 MG IN THE EVENING
  2. NEURONTIN [Suspect]
     Active Substance: GABAPENTIN
     Dosage: 1800 MG, DAILY, 600 MG IN THE MORNING AND 1200 MG AT NIGHT

REACTIONS (3)
  - Dizziness [Unknown]
  - Vertigo [Unknown]
  - Fall [Unknown]
